FAERS Safety Report 8430355-2 (Version None)
Quarter: 2012Q2

REPORT INFORMATION
  Report Type: 
  Country: None (occurrence: None)
  Receive Date: 20120612
  Receipt Date: 20120608
  Transmission Date: 20120825
  Serious: Yes (Hospitalization)
  Sender: FDA-Public Use
  Company Number: BE-AMGEN-BELCT2012004976

PATIENT
  Age: 39 Year
  Sex: Female
  Weight: 75 kg

DRUGS (24)
  1. LITICAN [Concomitant]
     Dosage: UNK
     Dates: start: 20111207, end: 20120213
  2. NOVABAN [Concomitant]
     Dosage: 5 MG, UNK
     Route: 042
     Dates: start: 20111207, end: 20120208
  3. RIOPAN [Concomitant]
     Route: 048
     Dates: start: 20111209, end: 20111228
  4. AUGMENTIN [Concomitant]
     Dosage: UNK
     Dates: start: 20111208, end: 20120205
  5. ZOLPIDEM TARTRATE [Concomitant]
     Route: 048
     Dates: start: 20111208
  6. DIFLUCAN [Concomitant]
     Route: 048
     Dates: start: 20111207
  7. NEULASTA [Suspect]
     Dosage: 6 MG, Q3WK
     Route: 058
     Dates: start: 20111228, end: 20120208
  8. EPIRUBICIN [Concomitant]
     Indication: BREAST CANCER
     Dosage: 100 MG/M2, Q3WK
     Route: 042
     Dates: start: 20111207
  9. PANTOPRAZOLE [Concomitant]
     Dosage: UNK
     Route: 048
     Dates: start: 20111209, end: 20120331
  10. CALCIUM CARBONATE [Concomitant]
     Route: 048
     Dates: start: 20111207
  11. CALCIUMCARBONAAT [Concomitant]
     Route: 048
     Dates: start: 20111207
  12. EMEND [Concomitant]
     Dosage: UNK
     Dates: start: 20111207, end: 20120210
  13. CETIRIZINE [Concomitant]
     Dosage: UNK
     Dates: start: 20111231, end: 20120401
  14. ZOLPIDEM [Concomitant]
     Dosage: 10 MG, QD
     Route: 048
     Dates: start: 20111208
  15. VIT D3 [Concomitant]
     Dosage: UNK
     Route: 048
     Dates: start: 20111207
  16. BETAHISTINE [Concomitant]
     Route: 048
     Dates: start: 20030615
  17. SOLU-MEDROL [Concomitant]
     Dosage: 80 MG, UNK
     Dates: start: 20111207, end: 20120208
  18. LEVOFLOXACIN [Concomitant]
     Dosage: 500 MG, UNK
     Route: 048
     Dates: start: 20111209, end: 20111213
  19. DENOSUMAB [Suspect]
     Indication: BREAST CANCER
     Dosage: UNK, Q3WK
     Route: 058
     Dates: start: 20111207
  20. FLUOROURACIL [Concomitant]
     Indication: BREAST CANCER
     Dosage: 600 MG/M2, Q3WK
     Route: 042
     Dates: start: 20111207
  21. CYCLOPHOSPHAMIDE [Concomitant]
     Indication: BREAST CANCER
     Dosage: 600 MG/M2, Q3WK
     Route: 042
     Dates: start: 20111207
  22. MEDROL [Concomitant]
     Route: 048
     Dates: start: 20111231, end: 20111231
  23. DEXAMETHASONE [Concomitant]
     Route: 048
     Dates: start: 20111208, end: 20120503
  24. TRAMADOL HCL [Concomitant]
     Route: 048
     Dates: start: 20111125

REACTIONS (1)
  - PAIN OF SKIN [None]
